FAERS Safety Report 4673251-9 (Version None)
Quarter: 2005Q2

REPORT INFORMATION
  Report Type: 
  Country: None (occurrence: None)
  Receive Date: 20050525
  Receipt Date: 20050518
  Transmission Date: 20051028
  Serious: Yes (Other)
  Sender: FDA-Public Use
  Company Number: 200514476GDDC

PATIENT
  Age: 82 Year
  Sex: Male

DRUGS (6)
  1. RAMIPRIL [Suspect]
     Indication: ESSENTIAL HYPERTENSION
     Route: 048
     Dates: start: 20040226, end: 20040303
  2. METRONIDAZOLE [Suspect]
     Indication: PNEUMONIA
     Dates: start: 20040226, end: 20040305
  3. CEPHALEXIN [Suspect]
     Indication: PNEUMONIA
     Dates: start: 20040225, end: 20040305
  4. VIOXX [Suspect]
     Indication: ARTHRITIS
     Dates: start: 20040301, end: 20040306
  5. ASPIRIN [Concomitant]
     Dates: start: 20040222, end: 20040306
  6. HEPARIN [Concomitant]
     Route: 058
     Dates: start: 20040222, end: 20040306

REACTIONS (1)
  - HYPONATRAEMIA [None]
